FAERS Safety Report 16285046 (Version 1)
Quarter: 2019Q2

REPORT INFORMATION
  Report Type: Spontaneous
  Country: GB (occurrence: GB)
  Receive Date: 20190508
  Receipt Date: 20190508
  Transmission Date: 20190711
  Serious: Yes (Other)
  Sender: FDA-Public Use
  Company Number: GB-TEVA-2019-GB-1047112

PATIENT
  Age: 46 Year
  Sex: Female
  Weight: 63.5 kg

DRUGS (1)
  1. CLARITHROMYCIN. [Suspect]
     Active Substance: CLARITHROMYCIN
     Indication: BACTERIAL INFECTION
     Route: 048
     Dates: start: 20190403

REACTIONS (7)
  - Dizziness [Unknown]
  - Nausea [Unknown]
  - Somnolence [Unknown]
  - Tremor [Unknown]
  - Diarrhoea [Recovering/Resolving]
  - Abdominal pain [Unknown]
  - Palpitations [Unknown]

NARRATIVE: CASE EVENT DATE: 20190403
